FAERS Safety Report 6238444-8 (Version None)
Quarter: 2009Q2

REPORT INFORMATION
  Report Type: 
  Country: None (occurrence: None)
  Receive Date: 20090622
  Receipt Date: 20090521
  Transmission Date: 20091009
  Serious: No
  Sender: FDA-Public Use
  Company Number: US-BAYER-200921761NA

PATIENT
  Age: 61 Year
  Sex: Female
  Weight: 77 kg

DRUGS (4)
  1. ULTRAVIST 300 [Suspect]
     Indication: COMPUTERISED TOMOGRAM ABDOMEN
     Dosage: TOTAL DAILY DOSE: 116 ML  UNIT DOSE: 200 ML
     Route: 042
     Dates: start: 20090521, end: 20090521
  2. LIPITOR [Concomitant]
  3. HYDROCHLOROTHIAZIDE [Concomitant]
  4. REDICAT [Concomitant]
     Indication: COMPUTERISED TOMOGRAM ABDOMEN
     Route: 048

REACTIONS (1)
  - URTICARIA [None]
